FAERS Safety Report 13539680 (Version 4)
Quarter: 2017Q3

REPORT INFORMATION
  Report Type: Spontaneous
  Country: GB (occurrence: GB)
  Receive Date: 20170512
  Receipt Date: 20170718
  Transmission Date: 20171127
  Serious: Yes (Hospitalization, Other)
  Sender: FDA-Public Use
  Company Number: GB-AMGEN-GBRSP2017072885

PATIENT
  Age: 62 Year
  Sex: Female
  Weight: 54 kg

DRUGS (7)
  1. PREDNISONE. [Concomitant]
     Active Substance: PREDNISONE
     Indication: RHEUMATOID ARTHRITIS
     Dosage: 4 MG, UNK
  2. LEVOTHYROXINE. [Concomitant]
     Active Substance: LEVOTHYROXINE
     Indication: HYPOTHYROIDISM
     Dosage: 125 MG, UNK
     Route: 048
  3. LANSOPRAZOLE. [Concomitant]
     Active Substance: LANSOPRAZOLE
     Dosage: UNK
  4. ADCAL D3 [Concomitant]
     Active Substance: CALCIUM CARBONATE\CHOLECALCIFEROL
     Dosage: UNK
  5. ETORICOXIB [Concomitant]
     Active Substance: ETORICOXIB
     Indication: RHEUMATOID ARTHRITIS
     Dosage: 90 MG, PRN
     Route: 048
     Dates: start: 2016
  6. ENBREL [Suspect]
     Active Substance: ETANERCEPT
     Indication: RHEUMATOID ARTHRITIS
     Dosage: 50 MG, WEEKLY
     Route: 058
     Dates: start: 20160812, end: 20170512
  7. PREDNISONE. [Concomitant]
     Active Substance: PREDNISONE
     Dosage: 5 UNK, UNK
     Route: 048

REACTIONS (10)
  - Gingival abscess [Recovering/Resolving]
  - Hair texture abnormal [Unknown]
  - Gingival pain [Unknown]
  - Gingival bleeding [Recovering/Resolving]
  - Thirst [Unknown]
  - Gingival disorder [Recovering/Resolving]
  - Swelling face [Recovering/Resolving]
  - Dry mouth [Recovering/Resolving]
  - Nail disorder [Unknown]
  - Dry skin [Unknown]

NARRATIVE: CASE EVENT DATE: 201608
